FAERS Safety Report 13616141 (Version 2)
Quarter: 2017Q2

REPORT INFORMATION
  Report Type: Spontaneous
  Country: HK (occurrence: HK)
  Receive Date: 20170606
  Receipt Date: 20170615
  Transmission Date: 20170830
  Serious: Yes (Death, Hospitalization, Other)
  Sender: FDA-Public Use
  Company Number: HK-ACTELION-A-CH2017-154566

PATIENT
  Age: 72 Year
  Sex: Female
  Weight: 47.5 kg

DRUGS (5)
  1. HYDROCORTISONE. [Concomitant]
     Active Substance: HYDROCORTISONE
     Indication: INTERSTITIAL LUNG DISEASE
     Dosage: 50 MG, QID
     Route: 042
     Dates: start: 20170305, end: 20170319
  2. MYCOPHENOLATE MOFETIL. [Concomitant]
     Active Substance: MYCOPHENOLATE MOFETIL
     Indication: INTERSTITIAL LUNG DISEASE
     Dosage: 500 MG, QAM
     Route: 048
     Dates: start: 20170305, end: 20170319
  3. MYCOPHENOLATE MOFETIL. [Concomitant]
     Active Substance: MYCOPHENOLATE MOFETIL
     Dosage: 1000 MG, QPM
     Route: 048
     Dates: start: 20170305, end: 20170319
  4. OPSUMIT [Suspect]
     Active Substance: MACITENTAN
     Indication: PULMONARY ARTERIAL HYPERTENSION
     Dosage: 10 MG, QD
     Route: 048
     Dates: start: 20170304, end: 20170319
  5. SILDENAFIL. [Concomitant]
     Active Substance: SILDENAFIL
     Indication: PULMONARY ARTERIAL HYPERTENSION

REACTIONS (10)
  - Mental disorder [Unknown]
  - General physical health deterioration [Fatal]
  - Cardiac failure [Fatal]
  - Blood creatinine increased [Fatal]
  - Respiratory failure [Fatal]
  - Sepsis [Fatal]
  - Multiple organ dysfunction syndrome [Fatal]
  - Renal failure [Fatal]
  - Drug effect incomplete [Unknown]
  - Hypotension [Fatal]
